FAERS Safety Report 15840014 (Version 1)
Quarter: 2019Q1

REPORT INFORMATION
  Report Type: Spontaneous
  Country: PT (occurrence: PT)
  Receive Date: 20190117
  Receipt Date: 20190117
  Transmission Date: 20190417
  Serious: Yes (Other)
  Sender: FDA-Public Use
  Company Number: PT-TEVA-2019-PT-998885

PATIENT
  Age: 31 Year
  Sex: Female

DRUGS (1)
  1. MIRTAZAPINE. [Suspect]
     Active Substance: MIRTAZAPINE
     Dosage: 7.5 MILLIGRAM DAILY;
     Route: 048
     Dates: start: 201706

REACTIONS (5)
  - Rash pruritic [Recovered/Resolved]
  - Eosinophilia [Recovered/Resolved]
  - Vasculitis [Recovered/Resolved]
  - Dermatitis bullous [Recovered/Resolved]
  - Rash [Recovered/Resolved]

NARRATIVE: CASE EVENT DATE: 201706
